FAERS Safety Report 17015115 (Version 2)
Quarter: 2020Q1

REPORT INFORMATION
  Report Type: Spontaneous
  Country: BR (occurrence: BR)
  Receive Date: 20191111
  Receipt Date: 20200204
  Transmission Date: 20200409
  Serious: Yes (Hospitalization)
  Sender: FDA-Public Use
  Company Number: BR-B.I. PHARMACEUTICALS,INC./RIDGEFIELD-2019-BI-112114

PATIENT
  Age: 81 Year
  Sex: Female
  Weight: 67 kg

DRUGS (10)
  1. TRAYENTA [Suspect]
     Active Substance: LINAGLIPTIN
     Indication: TYPE 2 DIABETES MELLITUS
     Route: 048
     Dates: start: 20191004
  2. SAL DE ANDREWS [Concomitant]
     Indication: DYSPEPSIA
     Route: 048
  3. DICLOFENACO [DICLOFENAC DIETHYLAMINE] [Concomitant]
     Indication: PAIN
     Route: 050
  4. ESC [Concomitant]
     Active Substance: ESCITALOPRAM OXALATE
     Indication: ANXIETY
     Route: 048
     Dates: start: 201909
  5. ESC [Concomitant]
     Active Substance: ESCITALOPRAM OXALATE
     Indication: ANXIETY
  6. AZORGA [Concomitant]
     Active Substance: BRINZOLAMIDE\TIMOLOL MALEATE
     Indication: GLAUCOMA
     Route: 031
     Dates: start: 2016
  7. GLUCERNA [Concomitant]
     Active Substance: AMINO ACIDS\DEXTROSE\ELECTROLYTES NOS\SOYBEAN OIL\VITAMINS
     Indication: NUTRITIONAL SUPPLEMENTATION
     Route: 048
     Dates: start: 20191101
  8. EXIT [BROMPHENIRAMINE MALEATE;CAFFEINE;PROPYPHENAZONE;SALICYLAMIDE] [Concomitant]
     Indication: CEREBROVASCULAR DISORDER
     Route: 065
  9. GUTTALAX [BISACODYL] [Concomitant]
     Indication: CONSTIPATION
     Dosage: 20 DROPS SPORADICALLY
     Route: 048
  10. PRESSAT [Concomitant]
     Active Substance: AMLODIPINE BESYLATE
     Indication: HYPERTENSION
     Route: 048
     Dates: start: 2009

REACTIONS (5)
  - Diabetes mellitus [Recovered/Resolved]
  - Drug ineffective [Recovered/Resolved]
  - Dizziness [Not Recovered/Not Resolved]
  - Throat tightness [Not Recovered/Not Resolved]
  - Cough [Not Recovered/Not Resolved]

NARRATIVE: CASE EVENT DATE: 201910
